FAERS Safety Report 17282871 (Version 1)
Quarter: 2020Q1

REPORT INFORMATION
  Report Type: Spontaneous
  Country: FR (occurrence: FR)
  Receive Date: 20200117
  Receipt Date: 20200117
  Transmission Date: 20200409
  Serious: Yes (Life-Threatening)
  Sender: FDA-Public Use
  Company Number: NVSC2020FR008428

PATIENT
  Age: 86 Year
  Sex: Female
  Weight: 65.5 kg

DRUGS (4)
  1. LAROXYL [Suspect]
     Active Substance: AMITRIPTYLINE HYDROCHLORIDE
     Indication: TOXICITY TO VARIOUS AGENTS
     Dosage: NON PR?CIS?
     Route: 048
     Dates: start: 20191021, end: 20191021
  2. ZOPICLONE [Suspect]
     Active Substance: ZOPICLONE
     Indication: TOXICITY TO VARIOUS AGENTS
     Dosage: 210 MG
     Route: 048
     Dates: start: 20191021, end: 20191021
  3. LAMALINE (ACETAMINOPHEN\CAFFEINE\OPIUM) [Suspect]
     Active Substance: ACETAMINOPHEN\CAFFEINE\OPIUM
     Indication: TOXICITY TO VARIOUS AGENTS
     Dosage: 15 DF
     Route: 048
     Dates: start: 20191021
  4. OLANZAPINE. [Suspect]
     Active Substance: OLANZAPINE
     Indication: TOXICITY TO VARIOUS AGENTS
     Dosage: 172.5 MG
     Route: 048
     Dates: start: 20191021, end: 20191021

REACTIONS (3)
  - Anterograde amnesia [Recovered/Resolved]
  - Coma [Recovered/Resolved]
  - Pneumonia aspiration [Recovered/Resolved]

NARRATIVE: CASE EVENT DATE: 20191021
